FAERS Safety Report 11539255 (Version 6)
Quarter: 2017Q1

REPORT INFORMATION
  Report Type: Spontaneous
  Country: US (occurrence: US)
  Receive Date: 20150923
  Receipt Date: 20170310
  Transmission Date: 20170428
  Serious: No
  Sender: FDA-Public Use
  Company Number: US-PFIZER INC-2015308383

PATIENT
  Age: 67 Year
  Sex: Female
  Weight: 79.37 kg

DRUGS (27)
  1. LEVOTHYROXINE. [Concomitant]
     Active Substance: LEVOTHYROXINE
     Indication: THYROID DISORDER
     Dosage: 88 MG, 1X/DAY
     Route: 048
  2. DUONEB [Concomitant]
     Active Substance: ALBUTEROL SULFATE\IPRATROPIUM BROMIDE
     Indication: WHEEZING
     Dosage: 3 ML, AS NEEDED (EVERY 6 HOURS ) [IPRATROPIUM BROMIDE-0.5 MG] [SALBUTAMOL SULFATE-2.5 MG]
     Dates: start: 20160802
  3. PROTONIX [Concomitant]
     Active Substance: PANTOPRAZOLE SODIUM
     Dosage: 40 MG, DAILY
     Route: 048
     Dates: start: 20160211
  4. LYRICA [Suspect]
     Active Substance: PREGABALIN
     Dosage: 300 MG, 1X/DAY, (100 MG, THREE AT BEDTIME)
     Route: 048
     Dates: start: 2011
  5. PROAIR HFA [Concomitant]
     Active Substance: ALBUTEROL SULFATE
     Indication: WHEEZING
  6. NORCO [Concomitant]
     Active Substance: ACETAMINOPHEN\HYDROCODONE BITARTRATE
     Indication: PAIN
     Dosage: 1 DF, AS NEEDED EVERY 6 HOURS [HYDROCODONE BITARTRATE-10 MG] [PARACETAMOL-325 MG]
     Route: 048
     Dates: start: 20160831
  7. ZITHROMAX [Concomitant]
     Active Substance: AZITHROMYCIN DIHYDRATE
     Dosage: 250 MG, UNK
  8. LYRICA [Suspect]
     Active Substance: PREGABALIN
     Dosage: 300 MG, 1X/DAY AT BED TIME
     Route: 048
     Dates: start: 2011, end: 20150905
  9. PRAVACHOL [Concomitant]
     Active Substance: PRAVASTATIN SODIUM
     Dosage: 80 MG, DAILY
     Route: 048
     Dates: start: 20160906
  10. SYNTHROID [Concomitant]
     Active Substance: LEVOTHYROXINE SODIUM
     Dosage: 88 UG, DAILY
     Route: 048
     Dates: start: 20160816
  11. LYRICA [Suspect]
     Active Substance: PREGABALIN
     Indication: FIBROMYALGIA
     Dosage: 3 DF, DAILY
     Route: 048
     Dates: start: 2010
  12. LYRICA [Suspect]
     Active Substance: PREGABALIN
     Dosage: 100 MG, UNK
     Route: 048
  13. PRAVASTATIN. [Concomitant]
     Active Substance: PRAVASTATIN
     Indication: BLOOD CHOLESTEROL INCREASED
     Dosage: 80 MG, DAILY, ONE TABLET
     Route: 048
  14. AMLODIPINE [Concomitant]
     Active Substance: AMLODIPINE BESYLATE
     Indication: BLOOD PRESSURE MEASUREMENT
     Dosage: 10 MG, DAILY, ONE TABLET
     Route: 048
  15. PROAIR HFA [Concomitant]
     Active Substance: ALBUTEROL SULFATE
     Indication: DYSPNOEA
     Dosage: UNK UNK, AS NEEDED [INHALE 2 PUFFS INTO THE LUNGS EVERY 4 HOURS] (108 (90 BASE) MCG/ACT )
     Dates: start: 20160223
  16. XANAX [Concomitant]
     Active Substance: ALPRAZOLAM
     Indication: SLEEP DISORDER
     Dosage: 0.5 MG, AS NEEDED [TAKE 1 TABLET BY MOUTH NIGHTLY ]
     Route: 048
     Dates: start: 20120206
  17. COD LIVER OIL [Concomitant]
     Active Substance: COD LIVER OIL
     Dosage: 1000 MG, DAILY
     Route: 048
  18. LUTEIN [Concomitant]
     Active Substance: LUTEIN
     Dosage: 1 DF, 2X/DAY
     Route: 048
  19. PANTOPRAZOLE [Concomitant]
     Active Substance: PANTOPRAZOLE SODIUM
     Indication: GASTROOESOPHAGEAL REFLUX DISEASE
     Dosage: 40 MG, DAILY, ONE TABLET
     Route: 048
  20. LEVOTHROID [Concomitant]
     Active Substance: LEVOTHYROXINE SODIUM
     Dosage: 88 UG, DAILY
     Route: 048
     Dates: start: 20160816
  21. NORVASC [Concomitant]
     Active Substance: AMLODIPINE BESYLATE
     Dosage: 10 MG, DAILY
     Route: 048
     Dates: start: 20160405
  22. SYMBICORT [Concomitant]
     Active Substance: BUDESONIDE\FORMOTEROL FUMARATE DIHYDRATE
     Dosage: UNK UNK, 2X/DAY [INHALE 2 PUFFS INTO LUNGS 2 TIMES][BUDESONIDE160 MCG] [FORMOTEROL FUMARATE-4.5 MCG]
     Dates: start: 20140626
  23. LYRICA [Suspect]
     Active Substance: PREGABALIN
     Dosage: 300 MG, 1X/DAY [100 MG CAPSULE 3 PO HS]
     Route: 048
     Dates: start: 20120829
  24. PRESERVISION [Concomitant]
     Active Substance: MINERALS\VITAMINS
     Indication: VITAMIN SUPPLEMENTATION
     Dosage: 1 DF, 2X/DAY
     Route: 048
  25. ESCITALOPRAM [Concomitant]
     Active Substance: ESCITALOPRAM OXALATE
     Indication: ILL-DEFINED DISORDER
     Dosage: 20 MG, DAILY, ONE TABLET
     Route: 048
  26. LEXAPRO [Concomitant]
     Active Substance: ESCITALOPRAM OXALATE
     Dosage: 20 MG, DAILY
     Route: 048
     Dates: start: 20160112
  27. ASPIRIN ADULT LOW STRENGTH [Concomitant]
     Active Substance: ASPIRIN
     Dosage: 81 MG, DAILY
     Route: 048
     Dates: start: 20101117

REACTIONS (7)
  - Neuralgia [Unknown]
  - Nasopharyngitis [Recovering/Resolving]
  - Cough [Recovering/Resolving]
  - Feeling abnormal [Unknown]
  - Pain [Recovered/Resolved]
  - Formication [Recovered/Resolved]
  - Hypersensitivity [Not Recovered/Not Resolved]

NARRATIVE: CASE EVENT DATE: 20161027
